FAERS Safety Report 12067668 (Version 1)
Quarter: 2016Q1

REPORT INFORMATION
  Report Type: Spontaneous
  Country: US (occurrence: None)
  Receive Date: 20160210
  Receipt Date: 20160210
  Transmission Date: 20160526
  Serious: No
  Sender: FDA-Public Use
  Company Number: None

PATIENT
  Age: 22 Year
  Sex: Female
  Weight: 99.79 kg

DRUGS (2)
  1. OTEZLA [Suspect]
     Active Substance: APREMILAST
     Indication: PSORIASIS
     Dosage: 1 PILL TWICE DAILY TAKEN BY MOUTH
     Route: 048
     Dates: start: 20151123, end: 20151212
  2. STELARA [Concomitant]
     Active Substance: USTEKINUMAB

REACTIONS (5)
  - Asthenia [None]
  - Nausea [None]
  - Gastrooesophageal reflux disease [None]
  - Impaired work ability [None]
  - Eructation [None]

NARRATIVE: CASE EVENT DATE: 20151213
